FAERS Safety Report 5507708-5 (Version None)
Quarter: 2007Q4

REPORT INFORMATION
  Report Type: 
  Country: None (occurrence: None)
  Receive Date: 20071106
  Receipt Date: 20071030
  Transmission Date: 20080405
  Serious: Yes (Hospitalization)
  Sender: FDA-Public Use
  Company Number: B0494081A

PATIENT
  Sex: Female

DRUGS (9)
  1. AVANDIA [Suspect]
     Indication: DIABETES MELLITUS
     Dosage: 4MG TWICE PER DAY
     Route: 065
     Dates: start: 20050101
  2. ROSIGLITAZONE MALEATE AND METFORMIN HCL [Suspect]
     Indication: DIABETES MELLITUS
     Route: 065
  3. RAMIPRIL [Concomitant]
     Indication: DRUG USE FOR UNKNOWN INDICATION
     Dosage: 2.5MG PER DAY
     Route: 065
  4. GLYCERYL TRINITRATE SPRAY [Concomitant]
     Indication: DRUG USE FOR UNKNOWN INDICATION
  5. SALBUTAMOL CFC FREE [Concomitant]
     Indication: DRUG USE FOR UNKNOWN INDICATION
     Dosage: 200MCG FOUR TIMES PER DAY
     Route: 055
  6. SIMVASTATIN [Concomitant]
     Indication: DRUG USE FOR UNKNOWN INDICATION
     Dosage: 40MG AT NIGHT
     Route: 065
  7. METFORMIN HYDROCHLORIDE [Concomitant]
     Indication: DRUG USE FOR UNKNOWN INDICATION
     Dosage: 1000MG TWICE PER DAY
     Route: 065
  8. AMLODIPINE [Concomitant]
     Indication: DRUG USE FOR UNKNOWN INDICATION
     Dosage: 10MG PER DAY
     Route: 065
  9. OMEPRAZOLE [Concomitant]
     Indication: DRUG USE FOR UNKNOWN INDICATION
     Dosage: 20MG TWICE PER DAY
     Route: 065

REACTIONS (1)
  - MYOCARDIAL INFARCTION [None]
